FAERS Safety Report 10858249 (Version 1)
Quarter: 2015Q1

REPORT INFORMATION
  Report Type: Spontaneous
  Country: US (occurrence: US)
  Receive Date: 20150223
  Receipt Date: 20150223
  Transmission Date: 20150721
  Serious: Yes (Hospitalization)
  Sender: FDA-Public Use
  Company Number: US-AMGEN-USASP2014009246

PATIENT
  Age: 54 Year
  Sex: Male

DRUGS (2)
  1. ENBREL [Suspect]
     Active Substance: ETANERCEPT
     Indication: PSORIASIS
  2. ENBREL [Suspect]
     Active Substance: ETANERCEPT
     Indication: PSORIATIC ARTHROPATHY
     Dosage: 50 MG, QWK
     Route: 065
     Dates: start: 20121020

REACTIONS (13)
  - Diverticulum [Recovered/Resolved]
  - Groin infection [Recovered/Resolved]
  - Staphylococcal infection [Recovered/Resolved]
  - Arterial rupture [Recovered/Resolved]
  - Post procedural infection [Recovered/Resolved]
  - Arthralgia [Not Recovered/Not Resolved]
  - Cardiovascular disorder [Recovered/Resolved]
  - Foot deformity [Not Recovered/Not Resolved]
  - Psoriasis [Not Recovered/Not Resolved]
  - Peripheral swelling [Not Recovered/Not Resolved]
  - Gastrointestinal infection [Recovered/Resolved]
  - Joint range of motion decreased [Not Recovered/Not Resolved]
  - Skin wound [Recovered/Resolved]

NARRATIVE: CASE EVENT DATE: 20130213
